FAERS Safety Report 12945006 (Version 1)
Quarter: 2016Q4

REPORT INFORMATION
  Report Type: Spontaneous
  Country: US (occurrence: US)
  Receive Date: 20161116
  Receipt Date: 20161116
  Transmission Date: 20170207
  Serious: No
  Sender: FDA-Public Use
  Company Number: US-JNJFOC-20161022146

PATIENT
  Sex: Male
  Weight: 104.33 kg

DRUGS (3)
  1. MENS ROGAINE EXTRA STRENGTH [Suspect]
     Active Substance: MINOXIDIL
     Route: 061
  2. MENS ROGAINE EXTRA STRENGTH [Suspect]
     Active Substance: MINOXIDIL
     Indication: ALOPECIA
     Route: 061
     Dates: end: 20161022
  3. TEA TREE OIL. [Concomitant]
     Active Substance: TEA TREE OIL
     Indication: SKIN DISORDER
     Dosage: DAILY
     Route: 065

REACTIONS (7)
  - Pruritus [Recovering/Resolving]
  - Dermatitis [Recovering/Resolving]
  - Skin reaction [Recovering/Resolving]
  - Pain of skin [Recovering/Resolving]
  - Skin disorder [Recovering/Resolving]
  - Condition aggravated [Recovering/Resolving]
  - Contraindicated product administered [Recovering/Resolving]
